FAERS Safety Report 7354818-6 (Version None)
Quarter: 2011Q1

REPORT INFORMATION
  Report Type: 
  Country: None (occurrence: None)
  Receive Date: 20110311
  Receipt Date: 20110311
  Transmission Date: 20110831
  Serious: Yes (Life-Threatening, Hospitalization)
  Sender: FDA-Public Use
  Company Number: None

PATIENT
  Sex: Female
  Weight: 81.6475 kg

DRUGS (1)
  1. BIAXIN [Suspect]
     Indication: SINUSITIS
     Dosage: X 2 DAILY 10-14 DAYS
     Dates: start: 20091001

REACTIONS (5)
  - VOMITING [None]
  - DYSGEUSIA [None]
  - WEIGHT DECREASED [None]
  - RENAL FAILURE [None]
  - CHEST PAIN [None]
